FAERS Safety Report 13368930 (Version 1)
Quarter: 2017Q1

REPORT INFORMATION
  Report Type: Spontaneous
  Country: CH (occurrence: CH)
  Receive Date: 20170324
  Receipt Date: 20170324
  Transmission Date: 20170429
  Serious: Yes (Death, Hospitalization, Other)
  Sender: FDA-Public Use
  Company Number: CH-BRISTOL-MYERS SQUIBB COMPANY-BMS-2017-023201

PATIENT
  Age: 84 Year
  Sex: Female

DRUGS (7)
  1. JAKAVI [Suspect]
     Active Substance: RUXOLITINIB
     Indication: MYELODYSPLASTIC SYNDROME TRANSFORMATION
     Route: 048
     Dates: start: 20170126, end: 20170127
  2. ASPIRIN CARDIO 100 FILMTABLETTEN [Suspect]
     Active Substance: ASPIRIN
     Indication: MYELOPROLIFERATIVE NEOPLASM
     Dosage: 1 DF, QD
     Route: 048
     Dates: end: 201611
  3. MOTILIUM [Concomitant]
     Active Substance: DOMPERIDONE
     Indication: PRODUCT USED FOR UNKNOWN INDICATION
     Route: 065
     Dates: start: 20170127, end: 20170127
  4. PANTOZOL [Suspect]
     Active Substance: PANTOPRAZOLE SODIUM
     Indication: PROPHYLAXIS
     Dosage: 40 MG, QD
     Route: 065
     Dates: end: 20170128
  5. LITALIR [Suspect]
     Active Substance: HYDROXYUREA
     Indication: MYELOPROLIFERATIVE NEOPLASM
     Route: 048
     Dates: start: 2014, end: 201611
  6. MORPHIN                            /00036302/ [Concomitant]
     Indication: PRODUCT USED FOR UNKNOWN INDICATION
     Route: 065
     Dates: start: 20170128, end: 20170128
  7. PREDNISON [Concomitant]
     Active Substance: PREDNISONE
     Indication: PRODUCT USED FOR UNKNOWN INDICATION
     Route: 065
     Dates: start: 20170126, end: 20170126

REACTIONS (17)
  - Leukopenia [Unknown]
  - Viral upper respiratory tract infection [Unknown]
  - Histiocytosis haematophagic [Fatal]
  - Anaemia [Unknown]
  - Colitis [Unknown]
  - Gastric ulcer [Unknown]
  - Thrombocytopenia [Fatal]
  - Pancytopenia [Unknown]
  - Therapeutic response decreased [Unknown]
  - Steatohepatitis [Unknown]
  - Enteritis [Unknown]
  - Gastric banding [Unknown]
  - Gastric antral vascular ectasia [Unknown]
  - Cardiac failure [Fatal]
  - Platelet transfusion [Unknown]
  - Packed red blood cell transfusion [Unknown]
  - Gastrointestinal haemorrhage [Fatal]

NARRATIVE: CASE EVENT DATE: 201611
